FAERS Safety Report 8364112-2 (Version None)
Quarter: 2012Q1

REPORT INFORMATION
  Report Type: 
  Country: None (occurrence: None)
  Receive Date: 20120323
  Receipt Date: 20111223
  Transmission Date: 20120608
  Serious: Yes (Other)
  Sender: FDA-Public Use
  Company Number: 163-21880-11123451

PATIENT
  Age: 67 Year
  Sex: Male

DRUGS (5)
  1. SIMVASTATIN [Concomitant]
  2. LISINOPRIL [Concomitant]
  3. TRAZODONE HCL [Concomitant]
  4. REVLIMID [Suspect]
     Indication: CHRONIC LYMPHOCYTIC LEUKAEMIA
     Dosage: 10 MG, 1 IN 1 D, PO; 5 MG, 1 IN 2 D, PO
     Route: 048
     Dates: start: 20111201
  5. REVLIMID [Suspect]
     Indication: CHRONIC LYMPHOCYTIC LEUKAEMIA
     Dosage: 10 MG, 1 IN 1 D, PO; 5 MG, 1 IN 2 D, PO
     Route: 048
     Dates: start: 20100301

REACTIONS (1)
  - NEUROPATHY PERIPHERAL [None]
